FAERS Safety Report 8298884-2 (Version None)
Quarter: 2012Q2

REPORT INFORMATION
  Report Type: 
  Country: None (occurrence: None)
  Receive Date: 20120419
  Receipt Date: 20120406
  Transmission Date: 20120825
  Serious: Yes (Hospitalization)
  Sender: FDA-Public Use
  Company Number: NL-CELGENEUS-114-21880-11020036

PATIENT
  Sex: Male
  Weight: 72 kg

DRUGS (9)
  1. EPOGEN [Concomitant]
     Route: 065
  2. BUPRENORFINE HYDROCHLORIDE [Concomitant]
     Dosage: 10 MCG/H
     Route: 003
     Dates: start: 20100101
  3. BUMETANIDE [Concomitant]
     Dosage: 2 MILLIGRAM
     Route: 048
     Dates: start: 20100101
  4. ENALAPRIL MALEATE [Concomitant]
     Dosage: 10 MILLIGRAM
     Route: 048
  5. REVLIMID [Suspect]
     Dosage: 10 MILLIGRAM
     Route: 048
     Dates: start: 20101221
  6. ASCAL CARDIO [Concomitant]
     Dosage: 100 MILLIGRAM
     Route: 065
  7. REVLIMID [Suspect]
     Dosage: 10 MILLIGRAM
     Route: 048
     Dates: start: 20110117, end: 20110124
  8. LACTULOSE STROOP [Concomitant]
     Dosage: 30 MILLILITER
     Route: 048
     Dates: start: 20110125
  9. NEUPOGEN [Concomitant]
     Route: 065

REACTIONS (1)
  - PSORIASIS [None]
